FAERS Safety Report 11651849 (Version 1)
Quarter: 2015Q4

REPORT INFORMATION
  Report Type: Spontaneous
  Country: US (occurrence: US)
  Receive Date: 20151022
  Receipt Date: 20151022
  Transmission Date: 20160304
  Serious: No
  Sender: FDA-Public Use
  Company Number: US-BAYER-2015-449198

PATIENT
  Age: 80 Year
  Sex: Male
  Weight: 81.63 kg

DRUGS (4)
  1. FOSINOPRIL [Concomitant]
     Active Substance: FOSINOPRIL
  2. SIMVASTATIN. [Concomitant]
     Active Substance: SIMVASTATIN
  3. TERAZOSIN [Concomitant]
     Active Substance: TERAZOSIN\TERAZOSIN HYDROCHLORIDE
  4. MIRALAX [Suspect]
     Active Substance: POLYETHYLENE GLYCOL 3350
     Indication: CONSTIPATION
     Dosage: 1 DF, QD
     Route: 048
     Dates: start: 201510, end: 201510

REACTIONS (1)
  - Pollakiuria [Recovered/Resolved]

NARRATIVE: CASE EVENT DATE: 201510
